FAERS Safety Report 6121811-0 (Version None)
Quarter: 2009Q1

REPORT INFORMATION
  Report Type: 
  Country: None (occurrence: None)
  Receive Date: 20090317
  Receipt Date: 20090310
  Transmission Date: 20090719
  Serious: Yes (Hospitalization, Other)
  Sender: FDA-Public Use
  Company Number: US-ELI_LILLY_AND_COMPANY-US200803002944

PATIENT
  Sex: Female
  Weight: 78.458 kg

DRUGS (5)
  1. ZYPREXA [Suspect]
     Dosage: 5 MG, EACH EVENING
     Dates: start: 20021122
  2. ZYPREXA [Suspect]
     Dosage: 7.5 MG, UNK
     Dates: start: 20040615
  3. ZYPREXA [Suspect]
     Dosage: 5 MG, UNK
     Dates: start: 20060223
  4. ZYPREXA [Suspect]
     Dosage: 10 MG, EACH EVENING
     Dates: start: 20060428
  5. ABILIFY [Concomitant]
     Dosage: 5 MG, UNK
     Dates: start: 20060524

REACTIONS (4)
  - BLOOD GLUCOSE INCREASED [None]
  - DIABETES MELLITUS [None]
  - HAEMORRHAGIC CYST [None]
  - PULMONARY EMBOLISM [None]
